FAERS Safety Report 8067346-X (Version None)
Quarter: 2012Q1

REPORT INFORMATION
  Report Type: 
  Country: None (occurrence: None)
  Receive Date: 20120124
  Receipt Date: 20120118
  Transmission Date: 20120608
  Serious: Yes (Hospitalization)
  Sender: FDA-Public Use
  Company Number: IT-GLAXOSMITHKLINE-B0777107A

PATIENT
  Sex: Female

DRUGS (2)
  1. LAMICTAL [Suspect]
     Indication: CONVULSION
     Dosage: 37.5MG PER DAY
     Route: 048
     Dates: start: 20111208, end: 20120101
  2. DEPAKENE [Concomitant]
     Dosage: 500MG PER DAY
     Route: 048

REACTIONS (6)
  - FACE OEDEMA [None]
  - RASH ERYTHEMATOUS [None]
  - PYREXIA [None]
  - DROOLING [None]
  - TRISMUS [None]
  - LIP SWELLING [None]
